FAERS Safety Report 6127680-7 (Version None)
Quarter: 2009Q1

REPORT INFORMATION
  Report Type: 
  Country: None (occurrence: None)
  Receive Date: 20090323
  Receipt Date: 20090316
  Transmission Date: 20090719
  Serious: Yes (Hospitalization, Other)
  Sender: FDA-Public Use
  Company Number: FR-AMGEN-UK317799

PATIENT
  Sex: Female

DRUGS (4)
  1. NEULASTA [Suspect]
     Indication: NEUTROPENIA
     Route: 058
     Dates: start: 20080903
  2. FLUOROURACIL [Concomitant]
     Route: 065
     Dates: start: 20080902
  3. EPIRUBICIN [Concomitant]
     Route: 065
     Dates: start: 20080902
  4. CYCLOPHOSPHAMIDE [Concomitant]
     Route: 065
     Dates: start: 20080902

REACTIONS (3)
  - DRUG INEFFECTIVE [None]
  - FEBRILE NEUTROPENIA [None]
  - INFECTED LYMPHOCELE [None]
